FAERS Safety Report 25507404 (Version 1)
Quarter: 2025Q3

REPORT INFORMATION
  Report Type: Spontaneous
  Country: CA (occurrence: CA)
  Receive Date: 20250703
  Receipt Date: 20250703
  Transmission Date: 20251021
  Serious: Yes (Other)
  Sender: ACCORD
  Company Number: None

PATIENT
  Age: 81 Year
  Sex: Female

DRUGS (5)
  1. METHOTREXATE SODIUM [Suspect]
     Active Substance: METHOTREXATE SODIUM
     Indication: Arthritis enteropathic
  2. MESALAMINE [Suspect]
     Active Substance: MESALAMINE
     Indication: Product used for unknown indication
  3. PREDNISONE [Suspect]
     Active Substance: PREDNISONE
     Indication: Arthritis enteropathic
  4. PREDNISONE [Suspect]
     Active Substance: PREDNISONE
     Indication: Arthritis enteropathic
  5. PREDNISONE [Suspect]
     Active Substance: PREDNISONE
     Indication: Arthritis enteropathic

REACTIONS (2)
  - Colitis [Unknown]
  - Condition aggravated [Unknown]
